FAERS Safety Report 5573741-0 (Version None)
Quarter: 2007Q4

REPORT INFORMATION
  Report Type: 
  Country: None (occurrence: None)
  Receive Date: 20071226
  Receipt Date: 20071220
  Transmission Date: 20080405
  Serious: Yes (Hospitalization)
  Sender: FDA-Public Use
  Company Number: FR-BRISTOL-MYERS SQUIBB COMPANY-14022289

PATIENT
  Age: 54 Year
  Sex: Male

DRUGS (3)
  1. REYATAZ [Suspect]
     Indication: HIV INFECTION
     Dates: start: 20051123, end: 20071204
  2. NORVIR [Concomitant]
     Dates: start: 20051123
  3. TRUVADA [Concomitant]
     Dates: start: 20051123

REACTIONS (2)
  - RENAL COLIC [None]
  - URINOMA [None]
